FAERS Safety Report 6825066-0 (Version None)
Quarter: 2010Q3

REPORT INFORMATION
  Report Type: 
  Country: None (occurrence: None)
  Receive Date: 20100708
  Receipt Date: 20061206
  Transmission Date: 20110219
  Serious: No
  Sender: FDA-Public Use
  Company Number: US-PFIZER INC-2006152604

PATIENT
  Sex: Female
  Weight: 107.05 kg

DRUGS (3)
  1. CHANTIX [Suspect]
     Indication: SMOKING CESSATION THERAPY
     Dates: start: 20061204, end: 20061205
  2. ALL OTHER THERAPEUTIC PRODUCTS [Concomitant]
  3. MOTRIN [Concomitant]

REACTIONS (3)
  - INCORRECT DOSE ADMINISTERED [None]
  - PALPITATIONS [None]
  - THYROID DISORDER [None]
